FAERS Safety Report 24726205 (Version 1)
Quarter: 2024Q4

REPORT INFORMATION
  Report Type: Spontaneous
  Country: US (occurrence: None)
  Receive Date: 20241211
  Receipt Date: 20241211
  Transmission Date: 20250114
  Serious: Yes (Life-Threatening, Hospitalization)
  Sender: Public
  Company Number: None

PATIENT
  Age: 77 Year
  Sex: Male
  Weight: 61 kg

DRUGS (1)
  1. DILTIAZEM [Suspect]
     Active Substance: DILTIAZEM
     Indication: Atrial tachycardia
     Dosage: 180.00 MG DAILY ORAL
     Route: 048
     Dates: end: 20241017

REACTIONS (2)
  - Atrioventricular block [None]
  - Therapy cessation [None]

NARRATIVE: CASE EVENT DATE: 20241016
